FAERS Safety Report 9909031 (Version 1)
Quarter: 2014Q1

REPORT INFORMATION
  Report Type: Spontaneous
  Country: US (occurrence: None)
  Receive Date: 20140214
  Receipt Date: 20140214
  Transmission Date: 20141002
  Serious: No
  Sender: FDA-Public Use
  Company Number: None

PATIENT
  Age: 13 Month
  Sex: 0

DRUGS (1)
  1. LIDOCAINE VISCOUS [Suspect]

REACTIONS (5)
  - Cardio-respiratory arrest [None]
  - Dyspnoea [None]
  - Tremor [None]
  - Unresponsive to stimuli [None]
  - Accidental exposure to product by child [None]
